FAERS Safety Report 24252160 (Version 1)
Quarter: 2024Q3

REPORT INFORMATION
  Report Type: Spontaneous
  Country: CN (occurrence: CN)
  Receive Date: 20240827
  Receipt Date: 20240827
  Transmission Date: 20241017
  Serious: Yes (Hospitalization, Other)
  Sender: NOVARTIS
  Company Number: CN-002147023-NVSC2024CN172091

PATIENT
  Age: 86 Year
  Sex: Female
  Weight: 48 kg

DRUGS (2)
  1. TEGRETOL [Suspect]
     Active Substance: CARBAMAZEPINE
     Indication: Neuralgia
     Dosage: 0.2 G, BID
     Route: 048
     Dates: start: 20220801, end: 20240814
  2. TRIVITAMINS B [Concomitant]
     Indication: Neuralgia
     Dosage: 1 DOSAGE FORM, TID
     Route: 048
     Dates: start: 20220801, end: 20240814

REACTIONS (10)
  - Hypokalaemia [Recovering/Resolving]
  - Lacunar infarction [Unknown]
  - Cerebral atrophy [Unknown]
  - Blood calcium decreased [Unknown]
  - Dizziness [Unknown]
  - Pain [Unknown]
  - Fibrin D dimer increased [Unknown]
  - Type IIb hyperlipidaemia [Unknown]
  - Blood pressure systolic increased [Unknown]
  - Electrocardiogram T wave abnormal [Unknown]

NARRATIVE: CASE EVENT DATE: 20240814
